FAERS Safety Report 5161567-1 (Version None)
Quarter: 2006Q4

REPORT INFORMATION
  Report Type: 
  Country: None (occurrence: None)
  Receive Date: 20061130
  Receipt Date: 20060911
  Transmission Date: 20070319
  Serious: No
  Sender: FDA-Public Use
  Company Number: US-GLAXOSMITHKLINE-A0619911A

PATIENT
  Age: 32 Year
  Sex: Female
  Weight: 90.5 kg

DRUGS (1)
  1. WELLBUTRIN XL [Suspect]
     Indication: DEPRESSION
     Route: 048
     Dates: start: 20060523

REACTIONS (4)
  - AFFECT LABILITY [None]
  - DYSARTHRIA [None]
  - PARANOIA [None]
  - TINNITUS [None]
